FAERS Safety Report 26052879 (Version 1)
Quarter: 2025Q4

REPORT INFORMATION
  Report Type: Spontaneous
  Country: US (occurrence: US)
  Receive Date: 20251117
  Receipt Date: 20251117
  Transmission Date: 20260117
  Serious: Yes (Life-Threatening, Hospitalization)
  Sender: MYLAN
  Company Number: US-MYLANLABS-2025M1096943

PATIENT
  Age: 55 Year
  Sex: Female

DRUGS (9)
  1. DILTIAZEM HYDROCHLORIDE [Suspect]
     Active Substance: DILTIAZEM HYDROCHLORIDE
     Indication: Product used for unknown indication
     Dosage: 0.6 GRAM, EXTENDED-RELEASE
  2. GLUCAGON [Suspect]
     Active Substance: GLUCAGON
     Indication: Toxicity to various agents
     Dosage: UNK
  3. AMIODARONE [Suspect]
     Active Substance: AMIODARONE
     Indication: Tachyarrhythmia
     Dosage: UNK
  4. EPINEPHRINE [Suspect]
     Active Substance: EPINEPHRINE
     Indication: Tachyarrhythmia
     Dosage: UNK
  5. EPINEPHRINE [Suspect]
     Active Substance: EPINEPHRINE
     Dosage: UNK,  GRADUALLY WEANED
  6. ACTIVATED CHARCOAL [Suspect]
     Active Substance: ACTIVATED CHARCOAL
     Indication: Toxicity to various agents
     Dosage: UNK
  7. CALCIUM CHLORIDE [Suspect]
     Active Substance: CALCIUM CHLORIDE
     Indication: Toxicity to various agents
     Dosage: UNK
  8. VASOPRESSIN [Suspect]
     Active Substance: VASOPRESSIN
     Indication: Tachyarrhythmia
     Dosage: UNK
  9. LEVOPHED [Suspect]
     Active Substance: NOREPINEPHRINE BITARTRATE
     Indication: Tachyarrhythmia

REACTIONS (9)
  - Overdose [Recovered/Resolved]
  - Toxicity to various agents [Recovered/Resolved]
  - Tachyarrhythmia [Recovered/Resolved]
  - Cardiac arrest [Recovered/Resolved]
  - Distributive shock [Recovered/Resolved]
  - Encephalopathy [Recovered/Resolved]
  - Pneumonia aspiration [Recovered/Resolved]
  - Drug ineffective [Unknown]
  - Product use in unapproved indication [Unknown]
